FAERS Safety Report 4636392-8 (Version None)
Quarter: 2005Q2

REPORT INFORMATION
  Report Type: 
  Country: None (occurrence: None)
  Receive Date: 20050415
  Receipt Date: 20050217
  Transmission Date: 20051028
  Serious: Yes (Hospitalization)
  Sender: FDA-Public Use
  Company Number: JP-ROCHE-396024

PATIENT
  Age: 26 Year
  Sex: Male

DRUGS (9)
  1. CELLCEPT [Suspect]
     Route: 048
     Dates: start: 20000531
  2. PREDONINE [Suspect]
     Route: 048
     Dates: start: 20000522
  3. PROGRAF [Suspect]
     Route: 048
     Dates: start: 20000522
  4. AHLBULIN [Concomitant]
     Route: 065
     Dates: start: 20000324
  5. SPANIDIN [Concomitant]
     Route: 042
     Dates: start: 20000324
  6. HERBESSER [Concomitant]
     Route: 048
  7. AMLODIN [Concomitant]
     Route: 048
  8. ZANTAC [Concomitant]
     Route: 048
     Dates: start: 20000522
  9. FERROMIA [Concomitant]
     Route: 048
     Dates: start: 20000525

REACTIONS (1)
  - EPIDIDYMITIS [None]
